FAERS Safety Report 7388965-X (Version None)
Quarter: 2011Q1

REPORT INFORMATION
  Report Type: 
  Country: None (occurrence: None)
  Receive Date: 20110329
  Receipt Date: 20110329
  Transmission Date: 20110831
  Serious: No
  Sender: FDA-Public Use
  Company Number: None

PATIENT

DRUGS (4)
  1. CALCIUM [Concomitant]
  2. OMEPRAZOLE [Concomitant]
  3. CENTRUM MULTIVITAMIN [Concomitant]
  4. FOSAMAX [Suspect]
     Indication: OSTEOPOROSIS

REACTIONS (2)
  - ABDOMINAL DISCOMFORT [None]
  - DIARRHOEA [None]
